FAERS Safety Report 6243705-2 (Version None)
Quarter: 2009Q2

REPORT INFORMATION
  Report Type: 
  Country: None (occurrence: None)
  Receive Date: 20090618
  Receipt Date: 20081017
  Transmission Date: 20091009
  Serious: Yes (Hospitalization)
  Sender: FDA-Public Use
  Company Number: WAES 0810USA03412

PATIENT
  Age: 75 Year
  Sex: Female

DRUGS (5)
  1. COZAAR [Suspect]
     Indication: BLOOD PRESSURE
     Dosage: 50 MG/DAILY/PO
     Route: 048
     Dates: start: 20080301, end: 20081003
  2. LIPITOR [Concomitant]
  3. NORVASC [Concomitant]
  4. FUROSEMIDE [Concomitant]
  5. TEMAZEPAM [Concomitant]

REACTIONS (2)
  - ANAPHYLACTIC REACTION [None]
  - VISION BLURRED [None]
